FAERS Safety Report 12573709 (Version 1)
Quarter: 2016Q3

REPORT INFORMATION
  Report Type: Spontaneous
  Country: US (occurrence: US)
  Receive Date: 20160720
  Receipt Date: 20160720
  Transmission Date: 20161109
  Serious: No
  Sender: FDA-Public Use
  Company Number: US-MISSION PHARMACAL COMPANY-1055278

PATIENT
  Age: 52 Year
  Sex: Male

DRUGS (2)
  1. THIOLA [Suspect]
     Active Substance: TIOPRONIN
     Route: 065
     Dates: start: 20160714
  2. THIOLA [Suspect]
     Active Substance: TIOPRONIN
     Indication: CYSTINURIA
     Route: 065
     Dates: start: 20160714

REACTIONS (4)
  - Vomiting [Unknown]
  - Abdominal discomfort [Unknown]
  - Discomfort [Unknown]
  - Renal pain [Unknown]

NARRATIVE: CASE EVENT DATE: 20160714
